FAERS Safety Report 9983779 (Version 1)
Quarter: 2014Q1

REPORT INFORMATION
  Report Type: Spontaneous
  Country: BR (occurrence: BR)
  Receive Date: 20140307
  Receipt Date: 20140307
  Transmission Date: 20141002
  Serious: Yes (Death)
  Sender: FDA-Public Use
  Company Number: BR-GLAXOSMITHKLINE-A1063797A

PATIENT
  Age: 70 Year
  Sex: Female

DRUGS (2)
  1. SERETIDE [Suspect]
     Indication: EMPHYSEMA
     Route: 055
  2. OXYGEN [Suspect]
     Indication: EMPHYSEMA
     Route: 065

REACTIONS (3)
  - Death [Fatal]
  - Eschar [Unknown]
  - Infection [Unknown]
